FAERS Safety Report 5416344-0 (Version None)
Quarter: 2007Q3

REPORT INFORMATION
  Report Type: 
  Country: None (occurrence: None)
  Receive Date: 20070816
  Receipt Date: 20070808
  Transmission Date: 20080115
  Serious: Yes (Other)
  Sender: FDA-Public Use
  Company Number: PHBS2007BR13305

PATIENT
  Age: 44 Year
  Sex: Female
  Weight: 108 kg

DRUGS (1)
  1. CATAFLAM [Suspect]
     Indication: PHARYNGITIS
     Route: 048

REACTIONS (2)
  - DYSPNOEA [None]
  - OBSTRUCTIVE AIRWAYS DISORDER [None]
